FAERS Safety Report 7402733-1 (Version None)
Quarter: 2011Q1

REPORT INFORMATION
  Report Type: 
  Country: None (occurrence: None)
  Receive Date: 20110330
  Receipt Date: 20110318
  Transmission Date: 20110831
  Serious: Yes (Hospitalization)
  Sender: FDA-Public Use
  Company Number: 866979

PATIENT
  Age: 16 Year
  Sex: Male

DRUGS (8)
  1. VANCOMYCIN HYDROCHLORIDE [Suspect]
     Indication: SEPSIS
     Dosage: 60 MG/KG/DAY
  2. (OXYGEN) [Concomitant]
  3. MEROPENEM [Suspect]
     Indication: SEPSIS
     Dosage: 100 MG/KG/DAY
  4. (SOLUTIONS FOR PARENTERAL NUTRITION) [Concomitant]
  5. AMIKACIN [Suspect]
     Indication: SEPSIS
     Dosage: 15 MG/KG/DAY
  6. (IMMUNOGLOBULIN /00025201/) [Suspect]
     Indication: PANCYTOPENIA
     Dosage: INTRAVENOUS DRIP
     Route: 041
  7. AMPHOTERICIN B [Suspect]
     Indication: ANTIFUNGAL TREATMENT
     Dosage: 1.5 MG/KG/DAY
  8. (CARDIAC THERAPY) [Concomitant]

REACTIONS (1)
  - SERUM SICKNESS-LIKE REACTION [None]
